FAERS Safety Report 5670823-X (Version None)
Quarter: 2008Q1

REPORT INFORMATION
  Report Type: 
  Country: None (occurrence: None)
  Receive Date: 20080318
  Receipt Date: 20080311
  Transmission Date: 20080703
  Serious: Yes (Other)
  Sender: FDA-Public Use
  Company Number: US-BAYER-200813937NA

PATIENT
  Age: 44 Year
  Sex: Female

DRUGS (6)
  1. MAGNEVIST [Suspect]
     Indication: NUCLEAR MAGNETIC RESONANCE IMAGING
     Route: 042
     Dates: start: 20080125, end: 20080125
  2. LORTAB [Concomitant]
  3. MEDROL [Concomitant]
  4. FLEXERIL [Concomitant]
  5. VALIUM [Concomitant]
  6. VICODIN [Concomitant]

REACTIONS (5)
  - CHEST PAIN [None]
  - DYSPHAGIA [None]
  - DYSPNOEA [None]
  - PAIN IN EXTREMITY [None]
  - THROAT TIGHTNESS [None]
